FAERS Safety Report 5130223-8 (Version None)
Quarter: 2006Q4

REPORT INFORMATION
  Report Type: 
  Country: None (occurrence: None)
  Receive Date: 20061019
  Receipt Date: 20060427
  Transmission Date: 20070319
  Serious: Yes (Death)
  Sender: FDA-Public Use
  Company Number: PHBS2006US06332

PATIENT
  Age: 49 Year
  Sex: Male

DRUGS (2)
  1. GLEEVEC [Suspect]
     Indication: CHRONIC MYELOID LEUKAEMIA
  2. INTERFERON ALFA [Concomitant]
     Indication: CHRONIC MYELOID LEUKAEMIA

REACTIONS (14)
  - ASTHENIA [None]
  - BASOPHIL PERCENTAGE INCREASED [None]
  - CHROMOSOME ABNORMALITY [None]
  - CHRONIC MYELOID LEUKAEMIA [None]
  - HAEMOGLOBIN DECREASED [None]
  - MARROW HYPERPLASIA [None]
  - MUCORMYCOSIS [None]
  - MYALGIA [None]
  - PLATELET COUNT DECREASED [None]
  - PYREXIA [None]
  - RESPIRATORY FAILURE [None]
  - STEM CELL TRANSPLANT [None]
  - SUBDURAL HAEMATOMA [None]
  - WHITE BLOOD CELL COUNT INCREASED [None]
